FAERS Safety Report 9628517 (Version 1)
Quarter: 2013Q4

REPORT INFORMATION
  Report Type: Spontaneous
  Country: US (occurrence: US)
  Receive Date: 20131017
  Receipt Date: 20131017
  Transmission Date: 20140711
  Serious: No
  Sender: FDA-Public Use
  Company Number: US-PFIZER INC-2013296582

PATIENT
  Age: 54 Year
  Sex: Female

DRUGS (11)
  1. XELJANZ [Suspect]
     Indication: RHEUMATOID ARTHRITIS
     Dosage: 5 MG, 2X/DAY
     Route: 048
     Dates: start: 20130608
  2. OXYCODONE [Concomitant]
     Dosage: UNK
  3. METHOTREXATE [Concomitant]
     Dosage: UNK
  4. HYDROCHLOROTHIAZIDE [Concomitant]
     Dosage: UNK
  5. SPIRONOLACTONE [Concomitant]
     Dosage: UNK
  6. FOLIC ACID [Concomitant]
     Dosage: UNK
  7. OXYBUTYNIN [Concomitant]
     Dosage: UNK
  8. PANTOPRAZOLE [Concomitant]
     Dosage: UNK
  9. VITAMIN D [Concomitant]
     Dosage: UNK
  10. CALCIUM [Concomitant]
     Dosage: UNK
  11. FISH OIL [Concomitant]
     Dosage: UNK

REACTIONS (2)
  - Alopecia [Unknown]
  - Fatigue [Unknown]
